FAERS Safety Report 12732502 (Version 1)
Quarter: 2016Q3

REPORT INFORMATION
  Report Type: Spontaneous
  Country: US (occurrence: US)
  Receive Date: 20160912
  Receipt Date: 20160912
  Transmission Date: 20161109
  Serious: Yes (Life-Threatening, Hospitalization)
  Sender: FDA-Public Use
  Company Number: US-JNJFOC-20160627790

PATIENT
  Age: 77 Year
  Sex: Female

DRUGS (2)
  1. XARELTO [Suspect]
     Active Substance: RIVAROXABAN
     Indication: ATROPHIE BLANCHE
     Route: 048
     Dates: start: 20150602, end: 20151223
  2. XARELTO [Suspect]
     Active Substance: RIVAROXABAN
     Indication: ATROPHIE BLANCHE
     Route: 048
     Dates: start: 20150303, end: 2015

REACTIONS (4)
  - Subarachnoid haemorrhage [Recovering/Resolving]
  - Off label use [Unknown]
  - Product use issue [Unknown]
  - Subdural haematoma [Recovering/Resolving]

NARRATIVE: CASE EVENT DATE: 20150303
